FAERS Safety Report 4740904-3 (Version None)
Quarter: 2005Q3

REPORT INFORMATION
  Report Type: 
  Country: None (occurrence: None)
  Receive Date: 20050810
  Receipt Date: 20050803
  Transmission Date: 20060218
  Serious: Yes (Other)
  Sender: FDA-Public Use
  Company Number: US-BRISTOL-MYERS SQUIBB COMPANY-13062781

PATIENT
  Age: 74 Year
  Sex: Female
  Weight: 79 kg

DRUGS (2)
  1. CETUXIMAB [Suspect]
     Indication: PANCREATIC CARCINOMA
     Dosage: COURSE 1.
     Dates: start: 10050718, end: 20050718
  2. GEMCITABINE [Suspect]
     Dosage: COURSE 1.
     Dates: start: 20050718, end: 20050718

REACTIONS (1)
  - CEREBRAL ISCHAEMIA [None]
